FAERS Safety Report 6897598-0 (Version None)
Quarter: 2010Q3

REPORT INFORMATION
  Report Type: 
  Country: None (occurrence: None)
  Receive Date: 20100802
  Receipt Date: 20070707
  Transmission Date: 20110219
  Serious: Yes (Other)
  Sender: FDA-Public Use
  Company Number: US-PFIZER INC-2007019435

PATIENT
  Sex: Female
  Weight: 55.3 kg

DRUGS (6)
  1. LYRICA [Suspect]
     Indication: NEURALGIA
     Dates: start: 20060915, end: 20060919
  2. CLONIDINE [Concomitant]
  3. VINCASAR PFS [Concomitant]
  4. INDAPAMIDE [Concomitant]
  5. GABAPENTIN [Concomitant]
  6. ALL OTHER THERAPEUTIC PRODUCTS [Concomitant]

REACTIONS (6)
  - GAIT DISTURBANCE [None]
  - HAIR GROWTH ABNORMAL [None]
  - HYPERHIDROSIS [None]
  - MUSCULAR WEAKNESS [None]
  - NEURALGIA [None]
  - PREMATURE AGEING [None]
